FAERS Safety Report 14524537 (Version 2)
Quarter: 2018Q3

REPORT INFORMATION
  Report Type: Spontaneous
  Country: US (occurrence: US)
  Receive Date: 20180213
  Receipt Date: 20180926
  Transmission Date: 20181010
  Serious: Yes (Other)
  Sender: FDA-Public Use
  Company Number: US-ASTRAZENECA-2018SE16384

PATIENT
  Age: 21153 Day
  Sex: Male
  Weight: 104.3 kg

DRUGS (90)
  1. ACETAMINOPHENE [Concomitant]
     Indication: PAIN
     Dosage: 325.0MG UNKNOWN
     Route: 065
     Dates: start: 2008
  2. PIROXICAM. [Concomitant]
     Active Substance: PIROXICAM
     Indication: ANALGESIC INTERVENTION SUPPORTIVE THERAPY
     Route: 065
     Dates: start: 20080118, end: 20080817
  3. AZITHROMYCIN ANHYDROUS. [Concomitant]
     Active Substance: AZITHROMYCIN ANHYDROUS
     Indication: BACTERIAL INFECTION
     Dosage: 250.0MG UNKNOWN
     Route: 065
     Dates: start: 20140414, end: 20140418
  4. BACTRIM [Concomitant]
     Active Substance: SULFAMETHOXAZOLE\TRIMETHOPRIM
     Indication: BACTERIAL INFECTION
     Route: 065
     Dates: start: 20170621, end: 20170627
  5. PRAVASTATIN. [Concomitant]
     Active Substance: PRAVASTATIN
     Indication: BLOOD CHOLESTEROL
     Route: 065
     Dates: start: 20100915, end: 20170101
  6. METOPROLOL TARTRATE. [Concomitant]
     Active Substance: METOPROLOL TARTRATE
     Indication: HYPERTENSION
     Route: 065
     Dates: start: 20100915, end: 20150618
  7. GABAPENTIN. [Concomitant]
     Active Substance: GABAPENTIN
     Indication: PAIN IN EXTREMITY
     Dosage: 300.0MG UNKNOWN
     Route: 065
     Dates: start: 20080204, end: 20080501
  8. PANTOPRAZOLE [Suspect]
     Active Substance: PANTOPRAZOLE
     Indication: GASTROOESOPHAGEAL REFLUX DISEASE
     Dosage: GENERIC
     Route: 048
     Dates: start: 20080126
  9. ACETAMINOPHENE [Concomitant]
     Indication: PYREXIA
     Dosage: 325.0MG UNKNOWN
     Route: 065
     Dates: start: 2008
  10. KETOROLAC [Concomitant]
     Active Substance: KETOROLAC\KETOROLAC TROMETHAMINE
     Indication: ANALGESIC INTERVENTION SUPPORTIVE THERAPY
     Dosage: 30.0MG UNKNOWN
     Route: 030
     Dates: start: 20160727
  11. CEFADROXIL. [Concomitant]
     Active Substance: CEFADROXIL
     Indication: BACTERIAL INFECTION
     Dosage: 500.0MG UNKNOWN
     Route: 065
     Dates: start: 20080826, end: 20080901
  12. LEVOFLOXACIN. [Concomitant]
     Active Substance: LEVOFLOXACIN
     Indication: BACTERIAL INFECTION
     Dosage: 750.0MG UNKNOWN
     Route: 065
     Dates: start: 20170107, end: 20170111
  13. LISINOPRIL. [Concomitant]
     Active Substance: LISINOPRIL
     Indication: HYPERTENSION
     Dosage: 20.0MG UNKNOWN
     Route: 065
     Dates: start: 20161120, end: 20161220
  14. VALSARTAN. [Concomitant]
     Active Substance: VALSARTAN
     Indication: HYPERTENSION
     Dosage: 160.0MG UNKNOWN
     Route: 065
     Dates: start: 20100915, end: 20160815
  15. METOPROLOL TARTRATE. [Concomitant]
     Active Substance: METOPROLOL TARTRATE
     Indication: HYPERTENSION
     Route: 065
     Dates: start: 20080118, end: 20091223
  16. PIROXICAM. [Concomitant]
     Active Substance: PIROXICAM
     Indication: PAIN
     Route: 065
     Dates: start: 20080118, end: 20080817
  17. GABAPENTIN. [Concomitant]
     Active Substance: GABAPENTIN
     Indication: PAIN IN EXTREMITY
     Dosage: 600.0MG UNKNOWN
     Route: 065
     Dates: start: 20161219, end: 20170317
  18. AUGMENTIN XR [Concomitant]
     Active Substance: AMOXICILLIN\CLAVULANATE POTASSIUM
     Indication: BACTERIAL INFECTION
     Route: 065
     Dates: start: 20090325, end: 20090403
  19. PROMETHAZINE [Concomitant]
     Active Substance: PROMETHAZINE\PROMETHAZINE HYDROCHLORIDE
     Indication: NAUSEA
     Dosage: 25.0MG UNKNOWN
     Route: 065
     Dates: start: 20090317, end: 20090402
  20. PROMETHAZINE [Concomitant]
     Active Substance: PROMETHAZINE\PROMETHAZINE HYDROCHLORIDE
     Indication: VOMITING
     Dosage: 25.0MG UNKNOWN
     Route: 065
     Dates: start: 20090317, end: 20090402
  21. PROMETHAZINE [Concomitant]
     Active Substance: PROMETHAZINE\PROMETHAZINE HYDROCHLORIDE
     Indication: VOMITING
     Dosage: 25.0MG UNKNOWN
     Route: 065
     Dates: start: 20110312, end: 20110321
  22. ONDANSETRON [Concomitant]
     Active Substance: ONDANSETRON
     Indication: VOMITING
     Dosage: 8.0MG UNKNOWN
     Route: 065
     Dates: start: 20090314, end: 20090319
  23. BUPIVACAINE. [Concomitant]
     Active Substance: BUPIVACAINE
     Indication: LOCAL ANAESTHESIA
     Route: 065
     Dates: start: 20160203
  24. CIPROFLOXACIN. [Concomitant]
     Active Substance: CIPROFLOXACIN
     Indication: BACTERIAL INFECTION
     Dosage: 500.0MG UNKNOWN
     Route: 065
     Dates: start: 20170526, end: 20170601
  25. CITALOPRAM [Concomitant]
     Active Substance: CITALOPRAM HYDROBROMIDE
     Indication: DEPRESSION
     Route: 065
     Dates: start: 20080109, end: 20091105
  26. LANTUS [Concomitant]
     Active Substance: INSULIN GLARGINE
     Indication: TYPE 2 DIABETES MELLITUS
     Dosage: 100 UNITS/ML
     Route: 065
     Dates: start: 20080131, end: 20100101
  27. RANITIDINE. [Concomitant]
     Active Substance: RANITIDINE
     Indication: GASTROOESOPHAGEAL REFLUX DISEASE
     Route: 065
     Dates: start: 20120215, end: 20120513
  28. SPIRIVA [Concomitant]
     Active Substance: TIOTROPIUM BROMIDE MONOHYDRATE
     Indication: CHRONIC OBSTRUCTIVE PULMONARY DISEASE
     Dosage: 18 MCG
     Route: 065
     Dates: start: 20140613, end: 20140713
  29. CLINDAMYCIN. [Concomitant]
     Active Substance: CLINDAMYCIN
     Indication: BACTERIAL INFECTION
     Dosage: 300.0MG UNKNOWN
     Route: 065
     Dates: start: 20150923, end: 20151006
  30. IBUPROFEN. [Concomitant]
     Active Substance: IBUPROFEN
     Indication: ANALGESIC INTERVENTION SUPPORTIVE THERAPY
     Dosage: 400.0MG UNKNOWN
     Route: 065
     Dates: start: 20160112, end: 20160926
  31. MIDAZOLAM [Concomitant]
     Active Substance: MIDAZOLAM HYDROCHLORIDE
     Indication: COLONOSCOPY ABNORMAL
     Dosage: 2.0MG UNKNOWN
     Route: 065
     Dates: start: 20140821
  32. PROPOFOL. [Concomitant]
     Active Substance: PROPOFOL
     Indication: COLONOSCOPY ABNORMAL
     Dosage: 100.0MG UNKNOWN
     Route: 065
     Dates: start: 20140821
  33. CALCIUM CARBONATE. [Concomitant]
     Active Substance: CALCIUM CARBONATE
     Dosage: 500.0MG UNKNOWN
     Route: 065
     Dates: start: 201202, end: 201305
  34. PREVACID [Suspect]
     Active Substance: LANSOPRAZOLE
     Indication: GASTROOESOPHAGEAL REFLUX DISEASE
     Route: 065
     Dates: start: 201009, end: 201610
  35. PANTOPRAZOLE [Suspect]
     Active Substance: PANTOPRAZOLE
     Indication: GASTROOESOPHAGEAL REFLUX DISEASE
     Dosage: GENERIC
     Route: 065
     Dates: start: 20080126, end: 20091123
  36. ASPIRIN. [Concomitant]
     Active Substance: ASPIRIN
     Indication: MYOCARDIAL INFARCTION
     Dosage: 81.0MG UNKNOWN
     Route: 065
     Dates: start: 201202
  37. FUROSEMIDE. [Concomitant]
     Active Substance: FUROSEMIDE
     Indication: HYPERTENSION
     Dosage: 40.0MG UNKNOWN
     Route: 065
     Dates: start: 20080731, end: 20091104
  38. TRIAMETERINE?HYDROCHLOROTHIAZIDE [Concomitant]
     Indication: HYPERTENSION
     Dosage: 37.5?5.25 MG
     Route: 065
     Dates: start: 20080424, end: 20080825
  39. PRAVASTATIN. [Concomitant]
     Active Substance: PRAVASTATIN
     Indication: BLOOD CHOLESTEROL
     Route: 065
     Dates: start: 201305, end: 20141102
  40. CITALOPRAM [Concomitant]
     Active Substance: CITALOPRAM HYDROBROMIDE
     Indication: DEPRESSION
     Route: 065
     Dates: start: 20100915, end: 20150915
  41. LANTUS [Concomitant]
     Active Substance: INSULIN GLARGINE
     Indication: TYPE 2 DIABETES MELLITUS
     Dosage: 100 UNITS/ML
     Route: 065
     Dates: start: 20100915, end: 20160809
  42. DEBROX [Concomitant]
     Active Substance: CARBAMIDE PEROXIDE
     Indication: EXCESSIVE CERUMEN PRODUCTION
     Dosage: 600.0MG UNKNOWN
     Route: 065
     Dates: start: 20161219, end: 20170317
  43. CEFADROXIL. [Concomitant]
     Active Substance: CEFADROXIL
     Indication: BACTERIAL INFECTION
     Dosage: 500.0MG UNKNOWN
     Route: 065
     Dates: start: 20080826, end: 20080901
  44. PROAIR HFA [Concomitant]
     Active Substance: ALBUTEROL SULFATE
     Indication: CHRONIC OBSTRUCTIVE PULMONARY DISEASE
     Dosage: 90 MCG
     Route: 065
     Dates: start: 20160407, end: 20160507
  45. BACITRACIN. [Concomitant]
     Active Substance: BACITRACIN
     Indication: INFECTION PROPHYLAXIS
     Dosage: 500 UNIT/G
     Route: 065
     Dates: start: 20140929, end: 20141029
  46. KETOROLAC [Concomitant]
     Active Substance: KETOROLAC\KETOROLAC TROMETHAMINE
     Indication: ANALGESIC INTERVENTION SUPPORTIVE THERAPY
     Dosage: 30.0MG UNKNOWN
     Route: 030
     Dates: start: 20160727
  47. PREVACID [Suspect]
     Active Substance: LANSOPRAZOLE
     Indication: GASTROOESOPHAGEAL REFLUX DISEASE
     Dosage: GENERIC30.0MG UNKNOWN
     Route: 048
     Dates: start: 20120425
  48. AMOXICILLIN. [Concomitant]
     Active Substance: AMOXICILLIN
     Indication: BACTERIAL INFECTION
     Dosage: 875.0MG UNKNOWN
     Route: 065
     Dates: start: 20090811, end: 20090820
  49. PENICILLIN VK [Concomitant]
     Active Substance: PENICILLIN V POTASSIUM
     Indication: BACTERIAL INFECTION
     Dosage: 500.0MG UNKNOWN
     Route: 065
     Dates: start: 20100720, end: 20100802
  50. BACTRIM [Concomitant]
     Active Substance: SULFAMETHOXAZOLE\TRIMETHOPRIM
     Indication: BACTERIAL INFECTION
     Route: 065
     Dates: start: 20090917, end: 20090923
  51. PRAVASTATIN. [Concomitant]
     Active Substance: PRAVASTATIN
     Indication: BLOOD CHOLESTEROL
     Route: 065
     Dates: start: 20150222, end: 20160205
  52. ACTOS [Concomitant]
     Active Substance: PIOGLITAZONE HYDROCHLORIDE
     Indication: TYPE 2 DIABETES MELLITUS
     Route: 065
     Dates: start: 20080103, end: 20091104
  53. NEXIUM [Suspect]
     Active Substance: ESOMEPRAZOLE MAGNESIUM
     Indication: GASTROOESOPHAGEAL REFLUX DISEASE
     Dosage: GENERIC UNKNOWN
     Route: 065
  54. NEXIUM 24HR [Suspect]
     Active Substance: ESOMEPRAZOLE MAGNESIUM
     Route: 048
     Dates: start: 201009, end: 201610
  55. PREVACID [Suspect]
     Active Substance: LANSOPRAZOLE
     Indication: GASTROOESOPHAGEAL REFLUX DISEASE
     Dosage: GENERIC30.0MG UNKNOWN
     Route: 065
     Dates: start: 20120425, end: 20161219
  56. KETOROLAC [Concomitant]
     Active Substance: KETOROLAC\KETOROLAC TROMETHAMINE
     Indication: PAIN
     Dosage: 30.0MG UNKNOWN
     Route: 030
     Dates: start: 20160727
  57. LISINOPRIL. [Concomitant]
     Active Substance: LISINOPRIL
     Indication: HYPERTENSION
     Dosage: 20.0MG UNKNOWN
     Route: 065
     Dates: start: 201301
  58. FUROSEMIDE. [Concomitant]
     Active Substance: FUROSEMIDE
     Indication: HYPERTENSION
     Dosage: 40.0MG UNKNOWN
     Route: 065
     Dates: start: 20100915, end: 20130726
  59. NIASPAN [Concomitant]
     Active Substance: NIACIN
     Indication: BLOOD CHOLESTEROL
     Route: 065
     Dates: start: 20080129, end: 20090126
  60. DEBROX [Concomitant]
     Active Substance: CARBAMIDE PEROXIDE
     Indication: EXCESSIVE CERUMEN PRODUCTION
     Dosage: 300.0MG UNKNOWN
     Route: 065
     Dates: start: 20150519, end: 20151206
  61. CHERATUSSIN AC [Concomitant]
     Active Substance: CODEINE PHOSPHATE\GUAIFENESIN
     Indication: COUGH
     Route: 065
     Dates: start: 200909
  62. PROMETHAZINE [Concomitant]
     Active Substance: PROMETHAZINE\PROMETHAZINE HYDROCHLORIDE
     Indication: NAUSEA
     Dosage: 25.0MG UNKNOWN
     Route: 065
     Dates: start: 20110312, end: 20110321
  63. KETOROLAC [Concomitant]
     Active Substance: KETOROLAC\KETOROLAC TROMETHAMINE
     Indication: PAIN
     Dosage: 30.0MG UNKNOWN
     Route: 030
     Dates: start: 20160727
  64. NEXIUM [Suspect]
     Active Substance: ESOMEPRAZOLE MAGNESIUM
     Indication: GASTROOESOPHAGEAL REFLUX DISEASE
     Dosage: 20.0MG UNKNOWN
     Route: 048
     Dates: start: 20100915, end: 20120330
  65. PREVACID [Suspect]
     Active Substance: LANSOPRAZOLE
     Indication: GASTROOESOPHAGEAL REFLUX DISEASE
     Dosage: GENERIC15.0MG UNKNOWN
     Route: 065
  66. PIROXICAM. [Concomitant]
     Active Substance: PIROXICAM
     Indication: PAIN
     Route: 065
     Dates: start: 20080118, end: 20080817
  67. AZITHROMYCIN ANHYDROUS. [Concomitant]
     Active Substance: AZITHROMYCIN ANHYDROUS
     Indication: BACTERIAL INFECTION
     Route: 065
     Dates: start: 20090305, end: 20090310
  68. AMLODIPINE BESYLATE AND BENAZEPRIL HYDROCHLORIDE [Concomitant]
     Active Substance: AMLODIPINE BESYLATE\BENAZEPRIL HYDROCHLORIDE
     Indication: HYPERTENSION
     Dosage: 5?20 MG
     Route: 065
     Dates: start: 20090924, end: 20091222
  69. LISINOPRIL. [Concomitant]
     Active Substance: LISINOPRIL
     Indication: HYPERTENSION
     Dosage: 20.0MG UNKNOWN
     Route: 065
     Dates: start: 20150413, end: 20160128
  70. PRAVASTATIN. [Concomitant]
     Active Substance: PRAVASTATIN
     Indication: BLOOD CHOLESTEROL
     Route: 065
     Dates: start: 20080424
  71. PRAVASTATIN. [Concomitant]
     Active Substance: PRAVASTATIN
     Indication: BLOOD CHOLESTEROL
     Route: 065
     Dates: start: 20090423, end: 20091104
  72. AMLODIPIN [Concomitant]
     Active Substance: AMLODIPINE BESYLATE
     Indication: HYPERTENSION
     Dosage: 5.0MG UNKNOWN
     Route: 065
     Dates: start: 20100915, end: 20160915
  73. DEBROX [Concomitant]
     Active Substance: CARBAMIDE PEROXIDE
     Indication: EXCESSIVE CERUMEN PRODUCTION
     Route: 065
     Dates: start: 20080424, end: 20080429
  74. PROVENTIL [Concomitant]
     Active Substance: ALBUTEROL
     Indication: CHRONIC OBSTRUCTIVE PULMONARY DISEASE
     Route: 065
     Dates: start: 20140414, end: 20140601
  75. CYCLOBENZAPRINE. [Concomitant]
     Active Substance: CYCLOBENZAPRINE
     Indication: MUSCLE RELAXANT THERAPY
     Dosage: 10.0MG UNKNOWN
     Route: 065
     Dates: start: 20140613, end: 20150214
  76. IBUPROFEN. [Concomitant]
     Active Substance: IBUPROFEN
     Indication: PAIN
     Dosage: 400.0MG UNKNOWN
     Route: 065
     Dates: start: 20160112, end: 20160926
  77. ONDANSETRON [Concomitant]
     Active Substance: ONDANSETRON
     Indication: NAUSEA
     Dosage: 8.0MG UNKNOWN
     Route: 065
     Dates: start: 20090314, end: 20090319
  78. FENTANYL. [Concomitant]
     Active Substance: FENTANYL
     Indication: COLONOSCOPY ABNORMAL
     Dosage: 50 MCG
     Route: 065
     Dates: start: 20140821
  79. NEXIUM [Suspect]
     Active Substance: ESOMEPRAZOLE MAGNESIUM
     Indication: GASTROOESOPHAGEAL REFLUX DISEASE
     Route: 048
     Dates: start: 201009, end: 201610
  80. NEXIUM [Suspect]
     Active Substance: ESOMEPRAZOLE MAGNESIUM
     Indication: GASTROOESOPHAGEAL REFLUX DISEASE
     Dosage: 20.0MG UNKNOWN
     Route: 048
     Dates: start: 20100915
  81. AZITHROMYCIN ANHYDROUS. [Concomitant]
     Active Substance: AZITHROMYCIN ANHYDROUS
     Indication: BACTERIAL INFECTION
     Dosage: 500.0MG UNKNOWN
     Route: 065
     Dates: start: 201409
  82. AMLODIPINE BESYLATE AND BENAZEPRIL HYDROCHLORIDE [Concomitant]
     Active Substance: AMLODIPINE BESYLATE\BENAZEPRIL HYDROCHLORIDE
     Indication: HYPERTENSION
     Dosage: 5?20 MG
     Route: 065
     Dates: start: 20080109, end: 20090721
  83. FUROSEMIDE. [Concomitant]
     Active Substance: FUROSEMIDE
     Indication: HYPERTENSION
     Dosage: 40.0MG UNKNOWN
     Route: 065
     Dates: start: 20140411, end: 20150915
  84. PIROXICAM. [Concomitant]
     Active Substance: PIROXICAM
     Indication: ANALGESIC INTERVENTION SUPPORTIVE THERAPY
     Route: 065
     Dates: start: 20080118, end: 20080817
  85. GABAPENTIN. [Concomitant]
     Active Substance: GABAPENTIN
     Indication: PAIN IN EXTREMITY
     Dosage: 300.0MG UNKNOWN
     Route: 065
     Dates: start: 20150519, end: 20151206
  86. HYDROCODONE?ACETAMINOPHEN [Concomitant]
     Active Substance: ACETAMINOPHEN\HYDROCODONE
     Indication: PAIN
     Dosage: 5?50 MG
     Route: 065
     Dates: start: 20080815
  87. HYDROCORTISONE. [Concomitant]
     Active Substance: HYDROCORTISONE
     Indication: ANALGESIC INTERVENTION SUPPORTIVE THERAPY
     Route: 065
     Dates: start: 20131216, end: 20140115
  88. CEPHALEXIN. [Concomitant]
     Active Substance: CEPHALEXIN
     Indication: BACTERIAL INFECTION
     Dosage: 500.0MG UNKNOWN
     Route: 065
     Dates: start: 20160112, end: 20170221
  89. TAMSULOSIN [Concomitant]
     Active Substance: TAMSULOSIN
     Indication: BENIGN PROSTATIC HYPERPLASIA
     Dosage: 0.4MG UNKNOWN
     Route: 065
     Dates: start: 20170119, end: 20170720
  90. PREDNISONE. [Concomitant]
     Active Substance: PREDNISONE
     Indication: ANALGESIC INTERVENTION SUPPORTIVE THERAPY
     Dosage: 20.0MG UNKNOWN
     Route: 065
     Dates: start: 20160727, end: 20161004

REACTIONS (3)
  - Acute kidney injury [Not Recovered/Not Resolved]
  - Renal failure [Unknown]
  - Chronic kidney disease [Unknown]

NARRATIVE: CASE EVENT DATE: 20130514
